FAERS Safety Report 4065640 (Version 3)
Quarter: 2013Q2

REPORT INFORMATION
  Report Type: Spontaneous
  Country: CH (occurrence: CH)
  Receive Date: 20040119
  Receipt Date: 20130612
  Transmission Date: 20140414
  Serious: Yes (Death, Hospitalization, Other)
  Sender: FDA-Public Use
  Company Number: CH-ROCHE-355637

PATIENT
  Age: 80 Year
  Sex: Female
  Weight: 63 kg

DRUGS (2)
  1. XELODA [Suspect]
     Indication: NEOPLASM MALIGNANT
     Route: 048
     Dates: start: 20031117, end: 20031130
  2. BRIVEX [Interacting]
     Indication: HERPES ZOSTER
     Route: 048
     Dates: start: 20031117, end: 20031128

REACTIONS (12)
  - Thrombocytopenia [Fatal]
  - Toxic epidermal necrolysis [Fatal]
  - Mucosal inflammation [Fatal]
  - Agranulocytosis [Fatal]
  - Drug interaction [Fatal]
  - Septic shock [Fatal]
  - Stevens-Johnson syndrome [Unknown]
  - Coma [Unknown]
  - Leukopenia [Unknown]
  - Renal impairment [Unknown]
  - Shock [Unknown]
  - Herpes zoster [Unknown]
